FAERS Safety Report 14860696 (Version 1)
Quarter: 2018Q2

REPORT INFORMATION
  Report Type: Spontaneous
  Country: IT (occurrence: IT)
  Receive Date: 20180508
  Receipt Date: 20180508
  Transmission Date: 20180711
  Serious: Yes (Other)
  Sender: FDA-Public Use
  Company Number: IT-MYLANLABS-2018M1028669

PATIENT
  Age: 27 Year
  Sex: Male

DRUGS (1)
  1. KETOPROFEN. [Suspect]
     Active Substance: KETOPROFEN
     Indication: PAIN
     Dosage: 1 DF, TOTAL
     Route: 048
     Dates: start: 20180130, end: 20180130

REACTIONS (4)
  - Pruritus generalised [Recovering/Resolving]
  - Generalised erythema [Recovering/Resolving]
  - Drug hypersensitivity [Recovering/Resolving]
  - Urticaria [Recovering/Resolving]

NARRATIVE: CASE EVENT DATE: 20180130
